FAERS Safety Report 15406869 (Version 1)
Quarter: 2018Q3

REPORT INFORMATION
  Report Type: Spontaneous
  Country: US (occurrence: US)
  Receive Date: 20180912
  Receipt Date: 20180912
  Transmission Date: 20181010
  Serious: No
  Sender: FDA-Public Use
  Company Number: None

PATIENT
  Age: 55 Year
  Sex: Male

DRUGS (1)
  1. TEMOZOLMIDE 5MG CAP [Suspect]
     Active Substance: TEMOZOLOMIDE
     Dates: start: 20180828

REACTIONS (5)
  - Headache [None]
  - Muscular weakness [None]
  - Vomiting [None]
  - Nausea [None]
  - Gait inability [None]

NARRATIVE: CASE EVENT DATE: 20180909
